FAERS Safety Report 6342561-1 (Version None)
Quarter: 2009Q3

REPORT INFORMATION
  Report Type: 
  Country: None (occurrence: None)
  Receive Date: 20090908
  Receipt Date: 20051114
  Transmission Date: 20100115
  Serious: No
  Sender: FDA-Public Use
  Company Number: JP-ROCHE-425982

PATIENT
  Sex: Male
  Weight: 3 kg

DRUGS (4)
  1. OSELTAMIVIR [Suspect]
     Dates: start: 20050316, end: 20050318
  2. CALONAL [Concomitant]
     Dosage: DOSAGE: 1200MG.
     Dates: start: 20050316, end: 20050318
  3. EVAMYL [Concomitant]
     Indication: INSOMNIA
     Dates: start: 20050316
  4. GENERIC UNKNOWN [Concomitant]
     Indication: COUGH
     Dosage: REPORTED AS: SHOUSEI RYUUTO (HERBAL MEDICINES).  DOSAGE: 7.5 GRAMS.
     Dates: start: 20050316, end: 20050318

REACTIONS (2)
  - DRUG EXPOSURE DURING PREGNANCY [None]
  - NORMAL NEWBORN [None]
